FAERS Safety Report 22293620 (Version 2)
Quarter: 2023Q2

REPORT INFORMATION
  Report Type: Report from Study
  Country: EG (occurrence: EG)
  Receive Date: 20230508
  Receipt Date: 20230517
  Transmission Date: 20230722
  Serious: Yes (Hospitalization, Other)
  Sender: FDA-Public Use
  Company Number: EG-002147023-NVSC2023EG100957

PATIENT
  Sex: Female

DRUGS (4)
  1. METHOTREXATE [Suspect]
     Active Substance: METHOTREXATE
     Indication: Psoriatic arthropathy
     Dosage: 0.5 CM, 0.75 CM, 1 CM EVERY WEEK, QW
     Route: 065
     Dates: start: 2000, end: 2017
  2. OMEGA 3 [Concomitant]
     Active Substance: CAPSAICIN
     Indication: Psoriatic arthropathy
     Dosage: UNK, BID
     Route: 065
     Dates: start: 2000
  3. SOAP [Concomitant]
     Active Substance: SOAP
     Indication: Psoriatic arthropathy
     Dosage: FOR BODY, PRN (UPON NEEDED)
     Route: 065
     Dates: start: 2000
  4. DERMOVIT [Concomitant]
     Indication: Psoriatic arthropathy
     Dosage: UNK
     Route: 065

REACTIONS (12)
  - Hypertension [Recovering/Resolving]
  - Gastrooesophageal reflux disease [Recovering/Resolving]
  - Vomiting [Recovering/Resolving]
  - Decreased appetite [Recovering/Resolving]
  - Malaise [Recovering/Resolving]
  - Blood lactate dehydrogenase increased [Recovering/Resolving]
  - Vitamin D increased [Recovering/Resolving]
  - Blood cholesterol increased [Recovered/Resolved]
  - Red blood cell sedimentation rate increased [Recovering/Resolving]
  - Movement disorder [Recovering/Resolving]
  - Bone pain [Recovering/Resolving]
  - Chondropathy [Unknown]

NARRATIVE: CASE EVENT DATE: 20130101
